FAERS Safety Report 25436312 (Version 1)
Quarter: 2025Q2

REPORT INFORMATION
  Report Type: Other
  Country: CN (occurrence: CN)
  Receive Date: 20250614
  Receipt Date: 20250614
  Transmission Date: 20250717
  Serious: Yes (Hospitalization, Other)
  Sender: ANI
  Company Number: CN-ANIPHARMA-023197

PATIENT
  Age: 12 Year
  Sex: Male

DRUGS (6)
  1. CARBAMAZEPINE [Suspect]
     Active Substance: CARBAMAZEPINE
     Indication: Depression
     Route: 048
  2. IBUPROFEN [Suspect]
     Active Substance: IBUPROFEN
     Indication: Analgesic therapy
  3. DICLOFENAC [Concomitant]
     Active Substance: DICLOFENAC
     Indication: Analgesic therapy
  4. ETORICOXIB [Concomitant]
     Active Substance: ETORICOXIB
     Indication: Analgesic therapy
  5. TRAMADOL [Concomitant]
     Active Substance: TRAMADOL
     Indication: Analgesic therapy
     Route: 030
  6. FENTANYL [Concomitant]
     Active Substance: FENTANYL
     Indication: Analgesic therapy

REACTIONS (3)
  - Osteonecrosis [Unknown]
  - Toxicity to various agents [Unknown]
  - Drug ineffective [Unknown]
